FAERS Safety Report 9410320 (Version 1)
Quarter: 2013Q3

REPORT INFORMATION
  Report Type: Spontaneous
  Country: US (occurrence: None)
  Receive Date: 20130718
  Receipt Date: 20130718
  Transmission Date: 20140515
  Serious: Yes (Death)
  Sender: FDA-Public Use
  Company Number: None

PATIENT
  Age: 71 Year
  Sex: Female

DRUGS (1)
  1. REVLIMID [Suspect]
     Indication: PLASMA CELL MYELOMA
     Route: 048
     Dates: start: 201211, end: 201212

REACTIONS (10)
  - Headache [None]
  - Cough [None]
  - Chills [None]
  - Melaena [None]
  - Cardiac arrest [None]
  - Hypotension [None]
  - Dyspnoea [None]
  - Decreased appetite [None]
  - Asthenia [None]
  - Body temperature increased [None]
